FAERS Safety Report 7549776-5 (Version None)
Quarter: 2011Q2

REPORT INFORMATION
  Report Type: 
  Country: None (occurrence: None)
  Receive Date: 20110615
  Receipt Date: 20061002
  Transmission Date: 20111010
  Serious: Yes (Hospitalization, Other)
  Sender: FDA-Public Use
  Company Number: PHFR2006GB02360

PATIENT
  Sex: Female

DRUGS (3)
  1. GLICLAZIDE [Concomitant]
     Indication: TYPE 2 DIABETES MELLITUS
     Dosage: 40 MG, QD
     Route: 048
  2. DEPIXOL [Concomitant]
     Indication: SCHIZOPHRENIA
     Dosage: 20 MG, BIW
     Route: 030
  3. CLOZAPINE [Suspect]
     Indication: SCHIZOPHRENIA
     Dosage: 100 MG, UNK
     Route: 048
     Dates: start: 19980717

REACTIONS (6)
  - DIVERTICULUM [None]
  - HAEMOGLOBIN DECREASED [None]
  - IRON DEFICIENCY ANAEMIA [None]
  - POLYP [None]
  - GASTROENTERITIS ENTEROVIRAL [None]
  - PLATELET COUNT INCREASED [None]
